FAERS Safety Report 11585952 (Version 1)
Quarter: 2015Q4

REPORT INFORMATION
  Report Type: Spontaneous
  Country: GB (occurrence: GB)
  Receive Date: 20151001
  Receipt Date: 20151001
  Transmission Date: 20160304
  Serious: Yes (Death, Hospitalization)
  Sender: FDA-Public Use
  Company Number: GB-DRREDDYS-GER/UKI/12/0026605

PATIENT
  Age: 70 Year
  Sex: Female
  Weight: 82.6 kg

DRUGS (10)
  1. DIAZEPAM. [Interacting]
     Active Substance: DIAZEPAM
     Indication: PRODUCT USED FOR UNKNOWN INDICATION
  2. PREGABALIN. [Concomitant]
     Active Substance: PREGABALIN
     Indication: PRODUCT USED FOR UNKNOWN INDICATION
  3. PROCYCLIDINE [Concomitant]
     Active Substance: PROCYCLIDINE
     Indication: PRODUCT USED FOR UNKNOWN INDICATION
  4. NITROFURANTOIN. [Concomitant]
     Active Substance: NITROFURANTOIN
     Indication: PRODUCT USED FOR UNKNOWN INDICATION
  5. DONEPEZIL. [Concomitant]
     Active Substance: DONEPEZIL
     Indication: PRODUCT USED FOR UNKNOWN INDICATION
  6. RISPERIDONE. [Suspect]
     Active Substance: RISPERIDONE
     Indication: DEMENTIA
  7. FUROSEMIDE. [Concomitant]
     Active Substance: FUROSEMIDE
     Indication: PRODUCT USED FOR UNKNOWN INDICATION
  8. LORAZEPAM. [Concomitant]
     Active Substance: LORAZEPAM
     Indication: PRODUCT USED FOR UNKNOWN INDICATION
  9. SODIUM VALPROATE [Concomitant]
     Active Substance: VALPROATE SODIUM
     Indication: PRODUCT USED FOR UNKNOWN INDICATION
  10. MIRTAZAPINE. [Interacting]
     Active Substance: MIRTAZAPINE
     Indication: PRODUCT USED FOR UNKNOWN INDICATION

REACTIONS (60)
  - Catatonia [Not Recovered/Not Resolved]
  - Paralysis [Not Recovered/Not Resolved]
  - Feeding disorder [Not Recovered/Not Resolved]
  - Urinary tract infection [Not Recovered/Not Resolved]
  - Muscle rigidity [Not Recovered/Not Resolved]
  - Dyspnoea [Not Recovered/Not Resolved]
  - Decreased appetite [Not Recovered/Not Resolved]
  - Sleep disorder [Not Recovered/Not Resolved]
  - Balance disorder [Not Recovered/Not Resolved]
  - Swelling face [Not Recovered/Not Resolved]
  - Extensor plantar response [Not Recovered/Not Resolved]
  - Hyporesponsive to stimuli [Not Recovered/Not Resolved]
  - Oculogyric crisis [Not Recovered/Not Resolved]
  - Opisthotonus [Not Recovered/Not Resolved]
  - Tachycardia [Not Recovered/Not Resolved]
  - Tremor [Not Recovered/Not Resolved]
  - Confusional state [Not Recovered/Not Resolved]
  - Tongue dry [Not Recovered/Not Resolved]
  - Tongue coated [Not Recovered/Not Resolved]
  - Cold sweat [Not Recovered/Not Resolved]
  - Sedation [Not Recovered/Not Resolved]
  - Pyrexia [Not Recovered/Not Resolved]
  - Incontinence [Not Recovered/Not Resolved]
  - Agitation [Not Recovered/Not Resolved]
  - Coma [Not Recovered/Not Resolved]
  - Seizure [Not Recovered/Not Resolved]
  - Local swelling [Not Recovered/Not Resolved]
  - Stupor [Not Recovered/Not Resolved]
  - Chorea [Not Recovered/Not Resolved]
  - Dyskinesia [Not Recovered/Not Resolved]
  - Back pain [Not Recovered/Not Resolved]
  - Neuroleptic malignant syndrome [Fatal]
  - Drug interaction [Not Recovered/Not Resolved]
  - Aphasia [Not Recovered/Not Resolved]
  - Essential hypertension [Not Recovered/Not Resolved]
  - Dehydration [Not Recovered/Not Resolved]
  - Muscle spasticity [Not Recovered/Not Resolved]
  - Autonomic nervous system imbalance [Not Recovered/Not Resolved]
  - Frustration [Not Recovered/Not Resolved]
  - Gait disturbance [Not Recovered/Not Resolved]
  - Liver function test abnormal [Not Recovered/Not Resolved]
  - Bedridden [Not Recovered/Not Resolved]
  - Cholecystitis [Not Recovered/Not Resolved]
  - Peripheral swelling [Not Recovered/Not Resolved]
  - General physical health deterioration [Not Recovered/Not Resolved]
  - Dysphagia [Not Recovered/Not Resolved]
  - Mental status changes [Not Recovered/Not Resolved]
  - Salivary hypersecretion [Not Recovered/Not Resolved]
  - Pain [Not Recovered/Not Resolved]
  - Somnolence [Not Recovered/Not Resolved]
  - Hyperhidrosis [Not Recovered/Not Resolved]
  - Pallor [Not Recovered/Not Resolved]
  - Coating in mouth [Not Recovered/Not Resolved]
  - Mucosal dryness [Not Recovered/Not Resolved]
  - Iron deficiency [Not Recovered/Not Resolved]
  - Skin tightness [Not Recovered/Not Resolved]
  - Communication disorder [Not Recovered/Not Resolved]
  - Blood pressure fluctuation [Not Recovered/Not Resolved]
  - Hyperthermia [Not Recovered/Not Resolved]
  - Rhabdomyolysis [Not Recovered/Not Resolved]
